FAERS Safety Report 10331513 (Version 3)
Quarter: 2014Q3

REPORT INFORMATION
  Report Type: Report from Study
  Country: DE (occurrence: DE)
  Receive Date: 20140722
  Receipt Date: 20140730
  Transmission Date: 20150326
  Serious: Yes (Death)
  Sender: FDA-Public Use
  Company Number: PHHY2014DE078002

PATIENT
  Sex: Male
  Weight: 74 kg

DRUGS (3)
  1. SUTENT [Concomitant]
     Active Substance: SUNITINIB MALATE
     Dates: start: 201203, end: 20131126
  2. AFINITOR [Suspect]
     Active Substance: EVEROLIMUS
  3. INLYTA [Concomitant]
     Active Substance: AXITINIB

REACTIONS (3)
  - Malignant neoplasm progression [Unknown]
  - Death [Fatal]
  - Drug intolerance [Unknown]

NARRATIVE: CASE EVENT DATE: 201403
